FAERS Safety Report 6552092-1 (Version None)
Quarter: 2010Q1

REPORT INFORMATION
  Report Type: 
  Country: None (occurrence: None)
  Receive Date: 20100120
  Receipt Date: 20100105
  Transmission Date: 20100710
  Serious: Yes (Death, Hospitalization, Other)
  Sender: FDA-Public Use
  Company Number: 1-21231380

PATIENT
  Age: 61 Year
  Sex: Male
  Weight: 54.4316 kg

DRUGS (14)
  1. PHENYTOIN SODIUM [Suspect]
     Indication: CONVULSION
     Dosage: 100 MG, 3 TIMES DAILY, ORAL
     Route: 048
     Dates: end: 20091123
  2. NORVASC [Concomitant]
  3. CALCIUM [Concomitant]
  4. CELEXA [Concomitant]
  5. CATAPRES [Concomitant]
  6. FERROUS SULFATE TAB [Concomitant]
  7. NEURONTIN [Concomitant]
  8. LISINOPRIL [Concomitant]
  9. ATIVAN [Concomitant]
  10. MEGACE [Concomitant]
  11. NITRO-DUR [Concomitant]
  12. TRANSDERMAL PATCH [Concomitant]
  13. DITROPAN XL [Concomitant]
  14. RISPERDAL [Concomitant]

REACTIONS (9)
  - ABNORMAL BEHAVIOUR [None]
  - AGGRESSION [None]
  - BLOOD CHLORIDE DECREASED [None]
  - BLOOD SODIUM DECREASED [None]
  - DECREASED APPETITE [None]
  - FALL [None]
  - LACERATION [None]
  - MENTAL STATUS CHANGES [None]
  - TREATMENT NONCOMPLIANCE [None]
